FAERS Safety Report 13631606 (Version 1)
Quarter: 2017Q2

REPORT INFORMATION
  Report Type: Spontaneous
  Country: US (occurrence: US)
  Receive Date: 20170531
  Receipt Date: 20170531
  Transmission Date: 20170830
  Serious: No
  Sender: FDA-Public Use
  Company Number: US-ASTELLAS-1395742

PATIENT
  Sex: Male

DRUGS (5)
  1. NORCO [Concomitant]
     Active Substance: ACETAMINOPHEN\HYDROCODONE BITARTRATE
  2. TARCEVA [Suspect]
     Active Substance: ERLOTINIB HYDROCHLORIDE
     Indication: LUNG NEOPLASM MALIGNANT
     Route: 048
     Dates: start: 20140408
  3. GABAPENTIN. [Concomitant]
     Active Substance: GABAPENTIN
  4. TRAZODONE [Concomitant]
     Active Substance: TRAZODONE HYDROCHLORIDE
  5. NEURONTIN [Concomitant]
     Active Substance: GABAPENTIN

REACTIONS (10)
  - Fluid retention [Unknown]
  - Staphylococcal infection [Unknown]
  - Bacterial infection [Unknown]
  - Ingrowing nail [Unknown]
  - Rash [Unknown]
  - Drug effect decreased [Unknown]
  - Rash erythematous [Unknown]
  - Onychoclasis [Unknown]
  - Diarrhoea [Unknown]
  - Gastric disorder [Unknown]
